FAERS Safety Report 22007976 (Version 2)
Quarter: 2023Q1

REPORT INFORMATION
  Report Type: Other
  Country: GB (occurrence: GB)
  Receive Date: 20230218
  Receipt Date: 20230227
  Transmission Date: 20230417
  Serious: Yes (Death)
  Sender: FDA-Public Use
  Company Number: GB-MHRA-MED-202302131111514670-SQPMY

PATIENT
  Age: 61 Year
  Sex: Male
  Weight: 102 kg

DRUGS (4)
  1. VISMODEGIB [Suspect]
     Active Substance: VISMODEGIB
     Indication: Basal cell naevus syndrome
     Dosage: 150MG OD
     Route: 065
     Dates: start: 20220131, end: 20220306
  2. AMLODIPINE [Concomitant]
     Active Substance: AMLODIPINE BESYLATE
     Indication: Hypertension
  3. CANDESARTAN [Concomitant]
     Active Substance: CANDESARTAN
     Indication: Hypertension
  4. INDAPAMIDE [Concomitant]
     Active Substance: INDAPAMIDE
     Indication: Hypertension

REACTIONS (2)
  - Hepatotoxicity [Fatal]
  - Hypertensive heart disease [Fatal]

NARRATIVE: CASE EVENT DATE: 20220306
